FAERS Safety Report 15739679 (Version 1)
Quarter: 2018Q4

REPORT INFORMATION
  Report Type: Spontaneous
  Country: US (occurrence: US)
  Receive Date: 20181218
  Receipt Date: 20181218
  Transmission Date: 20190205
  Serious: Yes (Disabling, Other)
  Sender: FDA-Public Use
  Company Number: None

PATIENT
  Age: 60 Year
  Sex: Female
  Weight: 87.75 kg

DRUGS (1)
  1. SOLCO LISINOPRIL 40 H149 [Suspect]
     Active Substance: LISINOPRIL
     Dosage: ?          QUANTITY:1 TABLET(S);?
     Route: 048

REACTIONS (4)
  - Product substitution issue [None]
  - Blindness [None]
  - Chest pain [None]
  - Drug ineffective [None]

NARRATIVE: CASE EVENT DATE: 20181201
